FAERS Safety Report 4767884-9 (Version None)
Quarter: 2005Q3

REPORT INFORMATION
  Report Type: 
  Country: None (occurrence: None)
  Receive Date: 20050913
  Receipt Date: 20050827
  Transmission Date: 20060218
  Serious: Yes (Other)
  Sender: FDA-Public Use
  Company Number: 217560

PATIENT
  Sex: Male

DRUGS (1)
  1. XOLAIR [Suspect]

REACTIONS (4)
  - ANGINA PECTORIS [None]
  - CONDITION AGGRAVATED [None]
  - ERYTHEMA [None]
  - FATIGUE [None]
